FAERS Safety Report 21971853 (Version 2)
Quarter: 2023Q1

REPORT INFORMATION
  Report Type: Report from Study
  Country: CO (occurrence: CO)
  Receive Date: 20230209
  Receipt Date: 20230213
  Transmission Date: 20230418
  Serious: Yes (Hospitalization, Other)
  Sender: FDA-Public Use
  Company Number: CO-ASTELLAS-2022US045299

PATIENT
  Age: 72 Year
  Sex: Male
  Weight: 64 kg

DRUGS (3)
  1. ENZALUTAMIDE [Suspect]
     Active Substance: ENZALUTAMIDE
     Indication: Hormone-refractory prostate cancer
     Route: 048
     Dates: start: 20220808
  2. ENZALUTAMIDE [Suspect]
     Active Substance: ENZALUTAMIDE
     Dosage: 80 MG, ONCE DAILY (EVERY 24 HOURS BETWEEN 6-7 PM)
     Route: 048
     Dates: start: 202212, end: 20221218
  3. ENZALUTAMIDE [Suspect]
     Active Substance: ENZALUTAMIDE
     Route: 048
     Dates: start: 202212, end: 20221223

REACTIONS (3)
  - Oesophageal disorder [Not Recovered/Not Resolved]
  - Dysphagia [Recovering/Resolving]
  - Discouragement [Recovering/Resolving]

NARRATIVE: CASE EVENT DATE: 20220808
